FAERS Safety Report 12997447 (Version 1)
Quarter: 2016Q4

REPORT INFORMATION
  Report Type: Spontaneous
  Country: US (occurrence: US)
  Receive Date: 20161202
  Receipt Date: 20161202
  Transmission Date: 20170207
  Serious: Yes (Hospitalization)
  Sender: FDA-Public Use
  Company Number: None

PATIENT
  Age: 79 Year
  Sex: Male
  Weight: 68.2 kg

DRUGS (1)
  1. LENALIDOMIDE [Suspect]
     Active Substance: LENALIDOMIDE
     Indication: PLASMA CELL MYELOMA
     Route: 048
     Dates: start: 20151106, end: 20151204

REACTIONS (5)
  - Dyspnoea [None]
  - Pleural effusion [None]
  - Colitis [None]
  - Ascites [None]
  - Blood albumin decreased [None]

NARRATIVE: CASE EVENT DATE: 20151214
